FAERS Safety Report 9831396 (Version 1)
Quarter: 2014Q1

REPORT INFORMATION
  Report Type: Spontaneous
  Country: JP (occurrence: JP)
  Receive Date: 20140121
  Receipt Date: 20140121
  Transmission Date: 20141002
  Serious: Yes (Death, Other)
  Sender: FDA-Public Use
  Company Number: JP-ROCHE-1333905

PATIENT
  Age: 51 Year
  Sex: Female
  Weight: 70 kg

DRUGS (6)
  1. AVASTIN [Suspect]
     Indication: BREAST CANCER METASTATIC
     Dosage: TREATMENT LINE: 2 AND COMPLETED TREATMENT CYCLE NUMBER: 11
     Route: 041
     Dates: start: 20111129
  2. AVASTIN [Suspect]
     Route: 041
     Dates: start: 20111213, end: 20121118
  3. PACLITAXEL [Suspect]
     Indication: BREAST CANCER METASTATIC
     Route: 041
     Dates: start: 20111129, end: 20121118
  4. GASTER (JAPAN) [Concomitant]
     Indication: PROPHYLAXIS
     Route: 042
     Dates: start: 20111129, end: 20121118
  5. DECADRON [Concomitant]
     Indication: PROPHYLAXIS
     Route: 042
     Dates: start: 20111129, end: 20121118
  6. RESTAMIN [Concomitant]
     Indication: ALLERGY PROPHYLAXIS
     Route: 048
     Dates: start: 20111129, end: 20121118

REACTIONS (2)
  - Disease progression [Fatal]
  - Neutrophil count decreased [Recovered/Resolved]
